FAERS Safety Report 8922942 (Version 1)
Quarter: 2012Q4

REPORT INFORMATION
  Report Type: 
  Country: JP (occurrence: JP)
  Receive Date: 20121125
  Receipt Date: 20121125
  Transmission Date: 20130627
  Serious: Yes (Death)
  Sender: FDA-Public Use
  Company Number: JP-009507513-2012SP002591

PATIENT
  Age: 43 Year
  Sex: Female

DRUGS (12)
  1. TEMOZOLOMIDE [Suspect]
     Indication: GLIOBLASTOMA MULTIFORME
     Dosage: 100 mg/m2, qd
     Route: 048
     Dates: start: 20070409, end: 20070413
  2. TEMOZOLOMIDE [Suspect]
     Dosage: 100 mg/m2, QD
     Route: 048
     Dates: start: 20061212, end: 20061216
  3. TEMOZOLOMIDE [Suspect]
     Dosage: 100 mg/m2, qd
     Route: 048
     Dates: start: 20070109, end: 20070113
  4. TEMOZOLOMIDE [Suspect]
     Dosage: 100 mg/m2, qd
     Route: 048
     Dates: start: 20070206, end: 20070210
  5. TEMOZOLOMIDE [Suspect]
     Dosage: 100 mg/m2, qd
     Route: 048
     Dates: start: 20070306, end: 20070310
  6. TEMOZOLOMIDE [Suspect]
     Dosage: 150 mg/m2, qd
     Route: 048
     Dates: start: 20060607, end: 20060611
  7. TEMOZOLOMIDE [Suspect]
     Dosage: 150 mg/m2, qd
     Route: 048
     Dates: start: 20060726, end: 20060730
  8. TEMOZOLOMIDE [Suspect]
     Dosage: 150 mg/m2, qd
     Route: 048
     Dates: start: 20060822, end: 20060826
  9. TEMOZOLOMIDE [Suspect]
     Dosage: 150 mg/m2, qd
     Route: 048
     Dates: start: 20061010, end: 20061014
  10. TEMOZOLOMIDE [Suspect]
     Dosage: 100 mg/m2, qd
     Route: 048
     Dates: start: 20061114, end: 20061118
  11. TEMOZOLOMIDE [Suspect]
     Dosage: 100 mg/m2, UNK
     Route: 048
     Dates: start: 20071009, end: 20071013
  12. TEMOZOLOMIDE [Suspect]
     Dosage: UNK

REACTIONS (2)
  - Disease progression [Fatal]
  - Neutrophil count decreased [Recovering/Resolving]
